FAERS Safety Report 4708456-1 (Version None)
Quarter: 2005Q3

REPORT INFORMATION
  Report Type: 
  Country: None (occurrence: None)
  Receive Date: 20050706
  Receipt Date: 20050624
  Transmission Date: 20060218
  Serious: Yes (Other)
  Sender: FDA-Public Use
  Company Number: 2005093266

PATIENT
  Age: 82 Year
  Sex: Male

DRUGS (5)
  1. NORVASC [Suspect]
     Indication: BLOOD PRESSURE
     Dosage: 5 MG (5 MG, DAILY INTERVAL: EVERY DAY), ORAL
     Route: 048
  2. GLUCOTROL [Concomitant]
  3. POTASSIUM (POTASSIUM) [Concomitant]
  4. COUMADIN [Concomitant]
  5. BUMEX [Concomitant]

REACTIONS (4)
  - BLOOD CHOLESTEROL INCREASED [None]
  - BLOOD PRESSURE FLUCTUATION [None]
  - CATARACT [None]
  - GLAUCOMA [None]
